FAERS Safety Report 11528270 (Version 1)
Quarter: 2015Q3

REPORT INFORMATION
  Report Type: Spontaneous
  Country: US (occurrence: US)
  Receive Date: 20150921
  Receipt Date: 20150921
  Transmission Date: 20151125
  Serious: No
  Sender: FDA-Public Use
  Company Number: US-ACTELION PHARMACEUTICALS US, INC.-A-US2015-111563

PATIENT
  Age: 58 Year
  Sex: Male

DRUGS (4)
  1. TRACLEER [Suspect]
     Active Substance: BOSENTAN
     Indication: PULMONARY ARTERIAL HYPERTENSION
     Dosage: UNK
     Route: 048
  2. VENTAVIS [Suspect]
     Active Substance: ILOPROST
     Indication: PULMONARY ARTERIAL HYPERTENSION
     Dosage: UNK MCG, UNK
     Route: 055
  3. SILDENAFIL. [Concomitant]
     Active Substance: SILDENAFIL
  4. VELETRI [Suspect]
     Active Substance: EPOPROSTENOL
     Indication: PULMONARY ARTERIAL HYPERTENSION
     Dosage: 11 NG/KG, PER MIN
     Route: 042
     Dates: start: 20141211

REACTIONS (8)
  - Catheter site pain [Unknown]
  - Catheter site inflammation [Recovered/Resolved]
  - Catheter site pruritus [Recovered/Resolved]
  - Central venous catheterisation [Unknown]
  - Catheter site erythema [Unknown]
  - Headache [Unknown]
  - Catheter site vesicles [Unknown]
  - Pain in jaw [Unknown]
